FAERS Safety Report 23359795 (Version 1)
Quarter: 2024Q1

REPORT INFORMATION
  Report Type: Spontaneous
  Country: EG (occurrence: EG)
  Receive Date: 20240103
  Receipt Date: 20240103
  Transmission Date: 20240410
  Serious: Yes (Other)
  Sender: FDA-Public Use
  Company Number: EG-HIKMA PHARMACEUTICALS-EG-H14001-23-68461

PATIENT
  Sex: Male
  Weight: 85 kg

DRUGS (2)
  1. GEMCITABINE [Suspect]
     Active Substance: GEMCITABINE
     Indication: Lung neoplasm malignant
     Dosage: 1600MG
     Route: 041
  2. CISPLATIN [Suspect]
     Active Substance: CISPLATIN
     Indication: Lung neoplasm malignant
     Dosage: 64MG, DAY 1, 8 REPEATED EVERY 21-DAY
     Route: 041

REACTIONS (4)
  - Abscess bacterial [Recovered/Resolved]
  - Haemoglobin decreased [Recovered/Resolved]
  - Platelet count increased [Recovered/Resolved]
  - Skin exfoliation [Recovered/Resolved]
